FAERS Safety Report 22117342 (Version 1)
Quarter: 2023Q1

REPORT INFORMATION
  Report Type: Spontaneous
  Country: US (occurrence: US)
  Receive Date: 20230320
  Receipt Date: 20230320
  Transmission Date: 20230417
  Serious: No
  Sender: FDA-Public Use
  Company Number: US-SA-SAC20230317000975

PATIENT
  Sex: Male

DRUGS (3)
  1. DUPIXENT [Suspect]
     Active Substance: DUPILUMAB
     Indication: Nasal polyps
     Dosage: 300 MG, QOW
     Route: 058
  2. DUPIXENT [Suspect]
     Active Substance: DUPILUMAB
     Indication: Paranasal sinus discomfort
  3. DUPIXENT [Suspect]
     Active Substance: DUPILUMAB
     Indication: Nasal congestion

REACTIONS (2)
  - Product use in unapproved indication [Unknown]
  - Drug effect less than expected [Unknown]
